FAERS Safety Report 8261295-X (Version None)
Quarter: 2012Q2

REPORT INFORMATION
  Report Type: 
  Country: None (occurrence: None)
  Receive Date: 20120405
  Receipt Date: 20120328
  Transmission Date: 20120825
  Serious: Yes (Hospitalization, Other)
  Sender: FDA-Public Use
  Company Number: ES-ABBOTT-12P-144-0897592-00

PATIENT
  Age: 36 Year
  Sex: Male

DRUGS (4)
  1. HUMIRA [Suspect]
     Indication: CROHN'S DISEASE
     Dosage: 160MG INDUCTION DOSE
     Route: 058
     Dates: start: 20010701
  2. HUMIRA [Suspect]
     Dosage: 80MG INDUCTION DOSE
     Route: 058
  3. HUMIRA [Suspect]
     Route: 058
     Dates: end: 20120101
  4. IMURAN [Suspect]
     Indication: CROHN'S DISEASE
     Route: 048
     Dates: start: 20010101

REACTIONS (6)
  - PYREXIA [None]
  - PLEURAL EFFUSION [None]
  - MYALGIA [None]
  - NON-HODGKIN'S LYMPHOMA STAGE IV [None]
  - ABDOMINAL PAIN LOWER [None]
  - ASCITES [None]
